FAERS Safety Report 8820454 (Version 1)
Quarter: 2012Q4

REPORT INFORMATION
  Report Type: 
  Country: US (occurrence: US)
  Receive Date: 20121002
  Receipt Date: 20121002
  Transmission Date: 20130627
  Serious: No
  Sender: FDA-Public Use
  Company Number: US-ASTRAZENECA-2012SE60677

PATIENT
  Age: 39 Year
  Sex: Female
  Weight: 61.2 kg

DRUGS (9)
  1. TOPROL XL [Suspect]
     Indication: PALPITATIONS
     Route: 048
  2. TOPROL XL [Suspect]
     Indication: TACHYCARDIA
     Route: 048
  3. MYOCARDIS [Concomitant]
  4. VIT D [Concomitant]
  5. TOPIRAMATE [Concomitant]
  6. EPIDRINE [Concomitant]
     Indication: MIGRAINE
  7. DESONIDE [Concomitant]
     Indication: RASH
  8. AMOXICILLINE [Concomitant]
     Indication: DENTAL OPERATION
  9. METROGEL FACE CREAM [Concomitant]
     Indication: ROSACEA

REACTIONS (4)
  - Heart rate increased [Not Recovered/Not Resolved]
  - Palpitations [Not Recovered/Not Resolved]
  - Drug ineffective for unapproved indication [Unknown]
  - Off label use [Unknown]
